FAERS Safety Report 19212195 (Version 2)
Quarter: 2021Q2

REPORT INFORMATION
  Report Type: Report from Study
  Country: CA (occurrence: CA)
  Receive Date: 20210504
  Receipt Date: 20210510
  Transmission Date: 20210717
  Serious: Yes (Other)
  Sender: FDA-Public Use
  Company Number: CA-AKCEA THERAPEUTICS-2021IS001048

PATIENT
  Age: 60 Year
  Sex: Female
  Weight: 35.86 kg

DRUGS (8)
  1. TEGSEDI [Suspect]
     Active Substance: INOTERSEN SODIUM
     Indication: HEREDITARY NEUROPATHIC AMYLOIDOSIS
     Route: 058
     Dates: start: 20200421
  2. VITAMIN D /00107901/ [Concomitant]
     Active Substance: ERGOCALCIFEROL
     Route: 048
  3. ISSD (INTEGRATED SYRINGE SAFETY DEVICE) [Suspect]
     Active Substance: DEVICE
  4. MIDODRINE [Suspect]
     Active Substance: MIDODRINE
     Route: 048
     Dates: start: 2019
  5. VITAMIN C [Concomitant]
     Active Substance: ASCORBIC ACID
     Route: 048
  6. VAGISIL /00104701/ [Concomitant]
     Route: 061
  7. CLARITIN [Concomitant]
     Active Substance: LORATADINE
     Route: 048
  8. VENIXXA [Concomitant]
     Route: 065

REACTIONS (15)
  - Anion gap decreased [Not Recovered/Not Resolved]
  - Lymphocyte count decreased [Not Recovered/Not Resolved]
  - Oedema peripheral [Unknown]
  - Red cell distribution width increased [Not Recovered/Not Resolved]
  - Blood creatinine decreased [Recovered/Resolved]
  - Monocyte count increased [Recovered/Resolved]
  - Urine protein/creatinine ratio increased [Unknown]
  - Blood cholesterol increased [Not Recovered/Not Resolved]
  - Low density lipoprotein increased [Not Recovered/Not Resolved]
  - Vitamin A decreased [Recovering/Resolving]
  - Carbon dioxide increased [Not Recovered/Not Resolved]
  - Red blood cell count decreased [Recovered/Resolved]
  - Creatinine urine decreased [Unknown]
  - Basophil count increased [Not Recovered/Not Resolved]
  - Platelet count decreased [Not Recovered/Not Resolved]

NARRATIVE: CASE EVENT DATE: 20210112
